FAERS Safety Report 13281848 (Version 1)
Quarter: 2017Q1

REPORT INFORMATION
  Report Type: Report from Study
  Country: US (occurrence: US)
  Receive Date: 20170301
  Receipt Date: 20170301
  Transmission Date: 20170428
  Serious: Yes (Death, Other)
  Sender: FDA-Public Use
  Company Number: US-ROCHE-1899074

PATIENT

DRUGS (5)
  1. WARFARIN [Suspect]
     Active Substance: WARFARIN
     Indication: ACUTE MYOCARDIAL INFARCTION
     Route: 065
  2. ALTEPLASE [Suspect]
     Active Substance: ALTEPLASE
     Indication: ACUTE MYOCARDIAL INFARCTION
     Route: 065
  3. ASPIRIN. [Suspect]
     Active Substance: ASPIRIN
     Indication: ACUTE MYOCARDIAL INFARCTION
     Route: 065
  4. HEPARIN [Suspect]
     Active Substance: HEPARIN SODIUM
     Indication: ACUTE MYOCARDIAL INFARCTION
     Route: 065
  5. STREPTOKINASE [Suspect]
     Active Substance: STREPTOKINASE
     Indication: ACUTE MYOCARDIAL INFARCTION
     Route: 065

REACTIONS (11)
  - Haemorrhage [Unknown]
  - Mouth haemorrhage [Unknown]
  - Pulmonary haemorrhage [Unknown]
  - Gastrointestinal haemorrhage [Unknown]
  - Haemorrhage urinary tract [Unknown]
  - Vascular access site haemorrhage [Unknown]
  - Muscle haemorrhage [Unknown]
  - Haemorrhage intracranial [Fatal]
  - Skin haemorrhage [Unknown]
  - Cerebrovascular disorder [Fatal]
  - Soft tissue haemorrhage [Unknown]
